FAERS Safety Report 4747864-X (Version None)
Quarter: 2005Q3

REPORT INFORMATION
  Report Type: 
  Country: None (occurrence: None)
  Receive Date: 20050816
  Receipt Date: 20050801
  Transmission Date: 20060218
  Serious: Yes (Death, Other)
  Sender: FDA-Public Use
  Company Number: 2005-0008605

PATIENT
  Age: 50 Year
  Sex: Male

DRUGS (16)
  1. VIREAD [Suspect]
     Indication: HIV INFECTION
     Dosage: 300 MG, 1 IN 1 D, ORAL
     Route: 048
  2. VIDEX EC [Concomitant]
  3. KALETRA [Concomitant]
  4. INVIRASE [Concomitant]
  5. HEPTOVIR (LAMIVUDINE) [Concomitant]
  6. METOCLOPRAMIDE [Concomitant]
  7. NAPROXEN [Concomitant]
  8. MORPHINE [Concomitant]
  9. CLONAZEPAM [Concomitant]
  10. LOSEC (OMEPRAZOLE) (CAPSULE) [Concomitant]
  11. NOZINAN (LEVOMEPROMAZINE) [Concomitant]
  12. TEGRETOL [Concomitant]
  13. TRAZODONE (TRAZODONE) [Concomitant]
  14. IMODIUM [Concomitant]
  15. VALGANCICLOVIR (VALGANCICLOVIR) [Concomitant]
  16. EFFEXOR [Concomitant]

REACTIONS (2)
  - BLOOD CREATININE INCREASED [None]
  - THROMBOSIS [None]
